FAERS Safety Report 4277001-X (Version None)
Quarter: 2004Q1

REPORT INFORMATION
  Report Type: 
  Country: None (occurrence: None)
  Receive Date: 20040109
  Receipt Date: 20031222
  Transmission Date: 20041129
  Serious: Yes (Hospitalization)
  Sender: FDA-Public Use
  Company Number: B0318381A

PATIENT
  Sex: Male
  Weight: 41.9124 kg

DRUGS (2)
  1. PAXIL [Suspect]
     Dosage: TRANSPLACENTARY
     Route: 064
  2. VITAMIN K TAB [Concomitant]

REACTIONS (13)
  - ATROPHY [None]
  - CONVULSION NEONATAL [None]
  - DILATATION VENTRICULAR [None]
  - EPILEPSY [None]
  - EYE MOVEMENT DISORDER [None]
  - FONTANELLE BULGING [None]
  - HYPOTONIA [None]
  - INTRAVENTRICULAR HAEMORRHAGE NEONATAL [None]
  - LETHARGY [None]
  - MATERNAL DRUGS AFFECTING FOETUS [None]
  - NEONATAL APNOEIC ATTACK [None]
  - NEONATAL DISORDER [None]
  - NERVOUS SYSTEM DISORDER [None]
